FAERS Safety Report 13497876 (Version 1)
Quarter: 2017Q2

REPORT INFORMATION
  Report Type: Spontaneous
  Country: DE (occurrence: DE)
  Receive Date: 20170428
  Receipt Date: 20170428
  Transmission Date: 20170830
  Serious: Yes (Hospitalization)
  Sender: FDA-Public Use
  Company Number: DE-BAYER-2017-079803

PATIENT
  Sex: Female
  Weight: 53.5 kg

DRUGS (2)
  1. MIRENA [Suspect]
     Active Substance: LEVONORGESTREL
     Dosage: 20 MCG/24HR, CONT
     Dates: start: 201609
  2. MIRENA [Suspect]
     Active Substance: LEVONORGESTREL
     Dosage: UNK
     Dates: end: 201507

REACTIONS (6)
  - Gastritis [None]
  - Abdominal pain [None]
  - Weight decreased [None]
  - Device use issue [None]
  - Anxiety [None]
  - Sleep disorder [None]
